FAERS Safety Report 25640182 (Version 1)
Quarter: 2025Q3

REPORT INFORMATION
  Report Type: Spontaneous
  Country: EU (occurrence: EU)
  Receive Date: 20250804
  Receipt Date: 20250804
  Transmission Date: 20251021
  Serious: Yes (Other)
  Sender: FERRING
  Company Number: None

PATIENT

DRUGS (3)
  1. DESMOPRESSIN [Suspect]
     Active Substance: DESMOPRESSIN
     Indication: Suicide attempt
     Route: 065
     Dates: start: 20250626, end: 20250626
  2. LACTULOSE [Concomitant]
     Active Substance: LACTULOSE
     Indication: Suicide attempt
     Route: 048
     Dates: start: 20250626
  3. LAMOTRIGINE [Concomitant]
     Active Substance: LAMOTRIGINE
     Indication: Bipolar disorder
     Route: 048
     Dates: start: 20250626

REACTIONS (3)
  - Suicide attempt [Unknown]
  - Rash [Not Recovered/Not Resolved]
  - Intentional overdose [Unknown]

NARRATIVE: CASE EVENT DATE: 20250626
